FAERS Safety Report 7743930-5 (Version None)
Quarter: 2011Q3

REPORT INFORMATION
  Report Type: 
  Country: None (occurrence: None)
  Receive Date: 20110912
  Receipt Date: 20110902
  Transmission Date: 20111222
  Serious: Yes (Hospitalization)
  Sender: FDA-Public Use
  Company Number: US-GLAXOSMITHKLINE-B0726099A

PATIENT
  Age: 28 Year
  Sex: Male
  Weight: 114.1 kg

DRUGS (8)
  1. PRAVASTATIN [Concomitant]
  2. AVANDAMET [Suspect]
     Indication: DIABETES MELLITUS
     Route: 048
     Dates: start: 20090206, end: 20090421
  3. HYZAAR [Concomitant]
  4. BYSTOLIC [Concomitant]
  5. JANUVIA [Concomitant]
  6. LISINOPRIL [Concomitant]
  7. LANTUS [Concomitant]
  8. AVANDIA [Suspect]
     Indication: DIABETES MELLITUS
     Dosage: 4MG PER DAY
     Route: 048
     Dates: start: 20081125, end: 20090205

REACTIONS (2)
  - CORONARY ARTERY DISEASE [None]
  - ARTERIOSCLEROSIS [None]
